FAERS Safety Report 16663765 (Version 1)
Quarter: 2019Q3

REPORT INFORMATION
  Report Type: Spontaneous
  Country: CN (occurrence: CN)
  Receive Date: 20190802
  Receipt Date: 20190802
  Transmission Date: 20191004
  Serious: No
  Sender: FDA-Public Use
  Company Number: CN-BEH-2019105340

PATIENT
  Age: 49 Year
  Sex: Female

DRUGS (2)
  1. ALBUMINAR [Suspect]
     Active Substance: ALBUMIN HUMAN
     Indication: CHEMOTHERAPY
     Dosage: 10 GRAM
     Route: 041
     Dates: start: 20190723, end: 20190724
  2. ALBUMINAR [Suspect]
     Active Substance: ALBUMIN HUMAN
     Indication: ENDOMETRIAL STROMAL SARCOMA

REACTIONS (2)
  - Pruritus [Recovered/Resolved]
  - Rash generalised [Recovered/Resolved]

NARRATIVE: CASE EVENT DATE: 20190724
